FAERS Safety Report 7723766-1 (Version None)
Quarter: 2011Q3

REPORT INFORMATION
  Report Type: 
  Country: None (occurrence: None)
  Receive Date: 20110901
  Receipt Date: 20110822
  Transmission Date: 20111222
  Serious: Yes (Other)
  Sender: FDA-Public Use
  Company Number: DE-GENZYME-MOZO-1000568

PATIENT

DRUGS (11)
  1. IFOSFAMIDE [Concomitant]
     Indication: GERM CELL CANCER
  2. MOZOBIL [Suspect]
     Indication: GERM CELL CANCER
  3. PACLITAXEL [Concomitant]
     Indication: HAEMATOPOIETIC STEM CELL MOBILISATION
     Dosage: UNK
     Route: 065
  4. CISPLATIN [Concomitant]
     Indication: HAEMATOPOIETIC STEM CELL MOBILISATION
     Route: 065
  5. CISPLATIN [Concomitant]
     Indication: GERM CELL CANCER
  6. PACLITAXEL [Concomitant]
     Indication: GERM CELL CANCER
  7. IFOSFAMIDE [Concomitant]
     Indication: HAEMATOPOIETIC STEM CELL MOBILISATION
     Route: 065
  8. MOZOBIL [Suspect]
     Indication: HAEMATOPOIETIC STEM CELL MOBILISATION
     Dosage: 240 MCG/KG, UNK
     Route: 058
  9. NEUPOGEN [Concomitant]
     Indication: GERM CELL CANCER
  10. PACLITAXEL [Concomitant]
  11. NEUPOGEN [Concomitant]
     Indication: HAEMATOPOIETIC STEM CELL MOBILISATION
     Route: 065

REACTIONS (1)
  - BLOOD STEM CELL HARVEST FAILURE [None]
